FAERS Safety Report 15959868 (Version 1)
Quarter: 2019Q1

REPORT INFORMATION
  Report Type: Spontaneous
  Country: US (occurrence: US)
  Receive Date: 20190214
  Receipt Date: 20190214
  Transmission Date: 20190417
  Serious: No
  Sender: FDA-Public Use
  Company Number: US-ROCHE-2067358

PATIENT
  Age: 46 Year
  Sex: Female

DRUGS (4)
  1. ERIVEDGE [Suspect]
     Active Substance: VISMODEGIB
     Route: 048
     Dates: start: 20180111
  2. ERIVEDGE [Suspect]
     Active Substance: VISMODEGIB
     Indication: BASAL CELL CARCINOMA
     Route: 048
     Dates: start: 20180112
  3. ERIVEDGE [Suspect]
     Active Substance: VISMODEGIB
     Indication: MALAISE
     Route: 048
     Dates: start: 20180110
  4. ERIVEDGE [Suspect]
     Active Substance: VISMODEGIB
     Route: 048
     Dates: start: 201803

REACTIONS (13)
  - Pain [Unknown]
  - Fatigue [Unknown]
  - Vomiting [Not Recovered/Not Resolved]
  - Headache [Not Recovered/Not Resolved]
  - Dizziness [Unknown]
  - Nausea [Unknown]
  - Muscle spasms [Unknown]
  - Muscle spasms [Not Recovered/Not Resolved]
  - Pain [Unknown]
  - Dysgeusia [Not Recovered/Not Resolved]
  - Pain of skin [Unknown]
  - Nausea [Not Recovered/Not Resolved]
  - Diarrhoea [Not Recovered/Not Resolved]

NARRATIVE: CASE EVENT DATE: 201803
